FAERS Safety Report 14562051 (Version 1)
Quarter: 2018Q1

REPORT INFORMATION
  Report Type: Spontaneous
  Country: US (occurrence: US)
  Receive Date: 20180222
  Receipt Date: 20180222
  Transmission Date: 20180509
  Serious: Yes (Disabling, Other)
  Sender: FDA-Public Use
  Company Number: US-REGENERON PHARMACEUTICALS, INC.-2018-15414

PATIENT

DRUGS (2)
  1. EYLEA [Suspect]
     Active Substance: AFLIBERCEPT
     Indication: NEOVASCULAR AGE-RELATED MACULAR DEGENERATION
  2. EYLEA [Suspect]
     Active Substance: AFLIBERCEPT
     Indication: CHOROIDAL NEOVASCULARISATION
     Dosage: 2 MG (0.05 ML), 8 WEEKS, OS
     Route: 031
     Dates: start: 20170615, end: 20171214

REACTIONS (8)
  - Anterior chamber cell [Recovered/Resolved]
  - Intraocular pressure decreased [Not Recovered/Not Resolved]
  - Blindness unilateral [Unknown]
  - Blindness transient [Recovering/Resolving]
  - Vitrectomy [Unknown]
  - Uveitis [Recovered/Resolved]
  - Hypopyon [Recovered/Resolved]
  - Vitreal cells [Recovered/Resolved]

NARRATIVE: CASE EVENT DATE: 201712
